FAERS Safety Report 8507435-6 (Version None)
Quarter: 2012Q3

REPORT INFORMATION
  Report Type: 
  Country: None (occurrence: None)
  Receive Date: 20120712
  Receipt Date: 20120321
  Transmission Date: 20120928
  Serious: Yes (Other)
  Sender: FDA-Public Use
  Company Number: PHEH2012US006384

PATIENT
  Sex: Female

DRUGS (5)
  1. SYNTHROID [Concomitant]
  2. M.V.I. [Concomitant]
  3. SANDOSTATIN [Suspect]
     Dosage: UNK UKN, TWICE A MONTH
     Dates: start: 20080101
  4. ASCORBIC ACID [Concomitant]
  5. HYDROCHLOROTHIAZIDE [Concomitant]

REACTIONS (5)
  - BLOOD PRESSURE INCREASED [None]
  - SOFT TISSUE MASS [None]
  - BLOOD PRESSURE DECREASED [None]
  - FEELING ABNORMAL [None]
  - GALLBLADDER DISORDER [None]
